FAERS Safety Report 18096921 (Version 2)
Quarter: 2021Q2

REPORT INFORMATION
  Report Type: Spontaneous
  Country: CA (occurrence: CA)
  Receive Date: 20200731
  Receipt Date: 20210402
  Transmission Date: 20210717
  Serious: Yes (Life-Threatening)
  Sender: FDA-Public Use
  Company Number: CA-ASTRAZENECA-2020SE95503

PATIENT
  Age: 51 Year
  Sex: Male
  Weight: 55 kg

DRUGS (11)
  1. LIPITOR [Concomitant]
     Active Substance: ATORVASTATIN CALCIUM
  2. NAPROXEN. [Concomitant]
     Active Substance: NAPROXEN
     Dosage: AS REQUIRED
     Route: 065
  3. LOPRESOR [Concomitant]
     Active Substance: METOPROLOL
  4. ONBREZ BREEZHALER [Concomitant]
     Active Substance: INDACATEROL
     Dosage: CAPSULE CONTAINING FREE?FLOWING POWDER FOR ORAL INHALATION DAILY
     Route: 065
  5. VENTOLIN [Concomitant]
     Active Substance: ALBUTEROL SULFATE
     Dosage: AS REQUIRED
  6. IMFINZI [Suspect]
     Active Substance: DURVALUMAB
     Indication: LUNG NEOPLASM MALIGNANT
     Route: 042
     Dates: start: 20190812, end: 20191030
  7. IMFINZI [Suspect]
     Active Substance: DURVALUMAB
     Indication: LUNG NEOPLASM MALIGNANT
     Route: 042
     Dates: start: 20190812, end: 20191030
  8. DEXILANT [Concomitant]
     Active Substance: DEXLANSOPRAZOLE
     Route: 065
  9. SERAX [Concomitant]
     Active Substance: OXAZEPAM
     Dosage: 15 AS REQUIRED
     Route: 065
  10. PREDNISONE. [Concomitant]
     Active Substance: PREDNISONE
     Indication: IMMUNE-MEDIATED ENTEROCOLITIS
     Dates: start: 201907
  11. SEEBRI BREEZHALER [Concomitant]
     Active Substance: GLYCOPYRROLATE
     Dosage: DAILY
     Route: 065

REACTIONS (1)
  - Thrombocytopenia [Recovered/Resolved]
